FAERS Safety Report 6840616-6 (Version None)
Quarter: 2010Q3

REPORT INFORMATION
  Report Type: 
  Country: None (occurrence: None)
  Receive Date: 20100714
  Receipt Date: 20071205
  Transmission Date: 20110219
  Serious: No
  Sender: FDA-Public Use
  Company Number: US-PFIZER INC-2007048255

PATIENT
  Age: 31 Year
  Sex: Male
  Weight: 72.6 kg

DRUGS (2)
  1. CHANTIX [Suspect]
     Indication: TOBACCO USER
     Route: 048
     Dates: start: 20070425
  2. DOXYCYCLINE [Concomitant]

REACTIONS (3)
  - ABDOMINAL PAIN UPPER [None]
  - BLADDER SPASM [None]
  - MICTURITION DISORDER [None]
